FAERS Safety Report 18405301 (Version 1)
Quarter: 2020Q4

REPORT INFORMATION
  Report Type: Spontaneous
  Country: US (occurrence: US)
  Receive Date: 20201020
  Receipt Date: 20201020
  Transmission Date: 20210114
  Serious: Yes (Other)
  Sender: FDA-Public Use
  Company Number: None

PATIENT
  Age: 58 Year
  Sex: Male
  Weight: 81.2 kg

DRUGS (13)
  1. INOSITOL [Concomitant]
     Active Substance: INOSITOL
  2. ZINC CITRATE [Concomitant]
     Active Substance: ZINC CITRATE
  3. SELENIUM-YEAST [Concomitant]
  4. CURCUMIN 95 [Concomitant]
  5. GREEN TEA EXTRACT [Concomitant]
  6. ELIGARD [Concomitant]
     Active Substance: LEUPROLIDE ACETATE
  7. IODINE STRONG [Concomitant]
  8. ABIRATERONE ACETATE. [Suspect]
     Active Substance: ABIRATERONE ACETATE
     Indication: PROSTATE CANCER
     Route: 048
     Dates: start: 20190224, end: 20201020
  9. GINKGO BILBOA EXTRACT [Concomitant]
  10. ASCORBIC ACID. [Concomitant]
     Active Substance: ASCORBIC ACID
  11. THISILIBIN [Concomitant]
  12. VITAMIN D3 [Concomitant]
     Active Substance: CHOLECALCIFEROL
  13. LYCOPENE [Concomitant]
     Active Substance: LYCOPENE

REACTIONS (1)
  - Disease progression [None]

NARRATIVE: CASE EVENT DATE: 20201020
